FAERS Safety Report 25147142 (Version 1)
Quarter: 2025Q2

REPORT INFORMATION
  Report Type: Spontaneous
  Country: US (occurrence: US)
  Receive Date: 20250401
  Receipt Date: 20250401
  Transmission Date: 20250716
  Serious: Yes (Life-Threatening, Other)
  Sender: BAYER
  Company Number: US-BAYER-2025A041409

PATIENT
  Age: 75 Year
  Sex: Female

DRUGS (2)
  1. ALKA-SELTZER PLUS MAXIMUM STRENGTH COUGH, MUCUS AND CONGESTION DAY AND [Suspect]
     Active Substance: ACETAMINOPHEN\DEXTROMETHORPHAN HYDROBROMIDE\DOXYLAMINE SUCCINATE\GUAIFENESIN\PHENYLEPHRINE HYDROCHLO
     Indication: Hypersensitivity
     Route: 048
     Dates: start: 20250319, end: 20250319
  2. ALKA-SELTZER PLUS MAXIMUM STRENGTH COUGH, MUCUS AND CONGESTION DAY AND [Suspect]
     Active Substance: ACETAMINOPHEN\DEXTROMETHORPHAN HYDROBROMIDE\DOXYLAMINE SUCCINATE\GUAIFENESIN\PHENYLEPHRINE HYDROCHLO
     Indication: Nasopharyngitis
     Route: 048
     Dates: start: 20250320, end: 20250320

REACTIONS (4)
  - Foreign body in throat [Recovered/Resolved]
  - Wrong technique in product usage process [Recovered/Resolved]
  - Dyspnoea [Recovered/Resolved]
  - Psychological trauma [None]

NARRATIVE: CASE EVENT DATE: 20250320
